FAERS Safety Report 23609771 (Version 2)
Quarter: 2024Q1

REPORT INFORMATION
  Report Type: Report from Study
  Country: US (occurrence: US)
  Receive Date: 20240308
  Receipt Date: 20240313
  Transmission Date: 20240409
  Serious: Yes (Other)
  Sender: FDA-Public Use
  Company Number: US-UCBSA-2024001291

PATIENT
  Age: 19 Year
  Sex: Male

DRUGS (3)
  1. FINTEPLA [Suspect]
     Active Substance: FENFLURAMINE
     Indication: Lennox-Gastaut syndrome
     Dosage: 5.8 MILLILITER, 2X/DAY (BID)
     Dates: start: 20231213
  2. FINTEPLA [Suspect]
     Active Substance: FENFLURAMINE
     Dosage: 5.8 MILLILITER, 2X/DAY (BID)
  3. FINTEPLA [Suspect]
     Active Substance: FENFLURAMINE
     Dosage: 5.8 MILLILITER, 2X/DAY (BID)

REACTIONS (7)
  - Syncope [Recovering/Resolving]
  - Aggression [Not Recovered/Not Resolved]
  - Fatigue [Not Recovered/Not Resolved]
  - Constipation [Not Recovered/Not Resolved]
  - Weight decreased [Recovering/Resolving]
  - Decreased appetite [Not Recovered/Not Resolved]
  - Dizziness [Recovering/Resolving]

NARRATIVE: CASE EVENT DATE: 20240105
